FAERS Safety Report 10056993 (Version 2)
Quarter: 2014Q2

REPORT INFORMATION
  Report Type: Report from Study
  Country: JP (occurrence: JP)
  Receive Date: 20140403
  Receipt Date: 20140422
  Transmission Date: 20141212
  Serious: Yes (Hospitalization, Other)
  Sender: FDA-Public Use
  Company Number: JP-TAKEDA-2014TJP004441

PATIENT
  Age: 85 Year
  Sex: Female
  Weight: 45 kg

DRUGS (5)
  1. ALOGLIPTIN [Suspect]
     Indication: TYPE 2 DIABETES MELLITUS
     Dosage: 25 MG, QD
     Route: 048
     Dates: start: 20110221, end: 20130821
  2. ZESTRIL [Concomitant]
     Dosage: 10 MG, 1 DAYS
     Route: 048
  3. CILNIDIPINE [Concomitant]
     Dosage: 5 MG, 1 DAYS
     Route: 048
  4. PLAVIX [Concomitant]
     Dosage: 75 MG, 1 DAYS
     Route: 048
  5. MYSLEE [Concomitant]
     Dosage: 5 MG, 1 DAYS
     Route: 048
     Dates: end: 20120625

REACTIONS (2)
  - Cerebral infarction [Unknown]
  - Condition aggravated [Unknown]
